FAERS Safety Report 5031335-X (Version None)
Quarter: 2006Q2

REPORT INFORMATION
  Report Type: 
  Country: None (occurrence: None)
  Receive Date: 20060615
  Receipt Date: 20060606
  Transmission Date: 20061013
  Serious: Yes (Death)
  Sender: FDA-Public Use
  Company Number: GXKR2006AU03210

PATIENT
  Age: 61 Year
  Sex: Male

DRUGS (4)
  1. DOXORUBICIN (NGX) (DOXORUBICIN) UNKNOWN [Suspect]
     Indication: B-CELL LYMPHOMA
  2. VINCRISTINE [Suspect]
     Indication: B-CELL LYMPHOMA
  3. PREDNISOLONE [Suspect]
     Indication: B-CELL LYMPHOMA
  4. CYCLOPHOSPHAMIDE [Suspect]
     Indication: B-CELL LYMPHOMA

REACTIONS (2)
  - HEPATIC FAILURE [None]
  - HEPATITIS B [None]
